FAERS Safety Report 15682008 (Version 2)
Quarter: 2018Q4

REPORT INFORMATION
  Report Type: Spontaneous
  Country: IT (occurrence: IT)
  Receive Date: 20181203
  Receipt Date: 20181217
  Transmission Date: 20190205
  Serious: Yes (Hospitalization)
  Sender: FDA-Public Use
  Company Number: PHHY2018IT170454

PATIENT
  Age: 76 Year
  Sex: Male

DRUGS (4)
  1. LEPONEX [Suspect]
     Active Substance: CLOZAPINE
     Dosage: 100 MG, TOTAL
     Route: 048
  2. BISOPROLOL FUMARATE. [Suspect]
     Active Substance: BISOPROLOL FUMARATE
     Dosage: 7.5 MG, TOTAL
     Route: 048
  3. BISOPROLOL FUMARATE. [Suspect]
     Active Substance: BISOPROLOL FUMARATE
     Indication: PRODUCT ADMINISTRATION ERROR
     Dosage: 7.5 MG, TOTAL
     Route: 048
     Dates: start: 20181108, end: 20181108
  4. LEPONEX [Suspect]
     Active Substance: CLOZAPINE
     Indication: PRODUCT ADMINISTRATION ERROR
     Dosage: 100 MG, TOTAL
     Route: 048
     Dates: start: 20181108, end: 20181108

REACTIONS (4)
  - Bradycardia [Recovering/Resolving]
  - Depressed level of consciousness [Recovering/Resolving]
  - Medication error [Recovering/Resolving]
  - Sopor [Recovering/Resolving]

NARRATIVE: CASE EVENT DATE: 20181108
